FAERS Safety Report 9244665 (Version 2)
Quarter: 2014Q1

REPORT INFORMATION
  Report Type: Spontaneous
  Country: FR (occurrence: FR)
  Receive Date: 20130422
  Receipt Date: 20140203
  Transmission Date: 20141002
  Serious: Yes (Death, Other)
  Sender: FDA-Public Use
  Company Number: FR-JNJFOC-20130410788

PATIENT
  Sex: 0

DRUGS (6)
  1. DOXORUBICIN [Suspect]
     Indication: PLASMA CELL LEUKAEMIA
     Dosage: ON DAY 4
     Route: 042
  2. BORTEZOMIB [Suspect]
     Indication: PLASMA CELL LEUKAEMIA
     Route: 065
  3. DEXAMETHASONE [Suspect]
     Indication: PLASMA CELL LEUKAEMIA
     Dosage: ON DAY 1 4 8 11
     Route: 065
  4. CYCLOPHOSPHAMIDE [Suspect]
     Indication: PLASMA CELL LEUKAEMIA
     Dosage: ON DAY 1 AND 8
     Route: 065
  5. LENALIDOMIDE [Suspect]
     Indication: PLASMA CELL LEUKAEMIA
     Dosage: ON MONTHS 1 4 7 10 AND 15MG 21/28 D ON OTHERS MONTHS FOR 1 YEAR
     Route: 065
  6. MELPHALAN [Suspect]
     Indication: PLASMA CELL LEUKAEMIA
     Route: 065

REACTIONS (6)
  - Sepsis [Fatal]
  - Pancytopenia [Unknown]
  - Infection [Unknown]
  - Plasma cell leukaemia [Unknown]
  - Drug ineffective [Unknown]
  - Off label use [Unknown]
